FAERS Safety Report 11881924 (Version 1)
Quarter: 2015Q4

REPORT INFORMATION
  Report Type: Spontaneous
  Country: US (occurrence: None)
  Receive Date: 20151230
  Receipt Date: 20151230
  Transmission Date: 20160305
  Serious: Yes (Life-Threatening, Hospitalization, Disabling, Other)
  Sender: FDA-Public Use
  Company Number: None

PATIENT
  Age: 56 Year
  Sex: Male
  Weight: 99.79 kg

DRUGS (12)
  1. GABAPENTIN. [Concomitant]
     Active Substance: GABAPENTIN
  2. LISINOPRIL. [Concomitant]
     Active Substance: LISINOPRIL
  3. METFORMIN [Concomitant]
     Active Substance: METFORMIN HYDROCHLORIDE
  4. INVOKANA (CANAGLIFLOZIN) GENERIC [Suspect]
     Active Substance: CANAGLIFLOZIN
     Indication: PRODUCT USED FOR UNKNOWN INDICATION
     Dosage: 30 PILLS 1 ADAY BY MOUTH
     Route: 048
     Dates: start: 20150201, end: 20150210
  5. VITAMIN D CALCIUM [Concomitant]
  6. HYDROCODON ACETAMINOPHIN [Concomitant]
  7. LACTULOSE SOLUTION [Concomitant]
     Active Substance: LACTULOSE
  8. DIAZEPAM. [Concomitant]
     Active Substance: DIAZEPAM
  9. OMEGA-3 KRILL OIL [Concomitant]
  10. MARIJUANA [Concomitant]
     Active Substance: CANNABIS SATIVA SUBSP. INDICA TOP
  11. SIMVASTATIN. [Concomitant]
     Active Substance: SIMVASTATIN
  12. GLYBURIDE. [Concomitant]
     Active Substance: GLYBURIDE

REACTIONS (3)
  - Kidney infection [None]
  - Renal injury [None]
  - Liver disorder [None]

NARRATIVE: CASE EVENT DATE: 20150201
